FAERS Safety Report 21968003 (Version 1)
Quarter: 2023Q1

REPORT INFORMATION
  Report Type: Other
  Country: US (occurrence: US)
  Receive Date: 20230208
  Receipt Date: 20230208
  Transmission Date: 20230418
  Serious: No
  Sender: FDA-Public Use
  Company Number: US-TRAVERE-2022TVT00490

PATIENT
  Age: 28 Year
  Sex: Female

DRUGS (14)
  1. CHOLBAM [Suspect]
     Active Substance: CHOLIC ACID
     Indication: Smith-Lemli-Opitz syndrome
     Dosage: 250 MG / BID
     Route: 048
     Dates: start: 20220306
  2. LO LOESTRIN FE [Concomitant]
     Active Substance: ETHINYL ESTRADIOL\NORETHINDRONE ACETATE
  3. Deplin 15 [Concomitant]
  4. PREVACID [Concomitant]
     Active Substance: LANSOPRAZOLE
  5. HERBALS\TURMERIC [Concomitant]
     Active Substance: HERBALS\TURMERIC
  6. METHOCARBAMOL [Concomitant]
     Active Substance: METHOCARBAMOL
  7. Cholesterol Relief [Concomitant]
  8. TYLENOL EXTRA STRENGTH [Concomitant]
     Active Substance: ACETAMINOPHEN
  9. FLUOXETINE [Concomitant]
     Active Substance: FLUOXETINE HYDROCHLORIDE
  10. CYCLOBENZAPRINE [Concomitant]
     Active Substance: CYCLOBENZAPRINE
  11. MELOXICAM [Concomitant]
     Active Substance: MELOXICAM
  12. URSODIOL [Concomitant]
     Active Substance: URSODIOL
  13. MYLANTA [Concomitant]
     Active Substance: ALUMINUM HYDROXIDE\DIMETHICONE\MAGNESIUM HYDROXIDE
  14. DIETARY SUPPLEMENT\HERBALS\MILK THISTLE [Concomitant]
     Active Substance: DIETARY SUPPLEMENT\HERBALS\MILK THISTLE

REACTIONS (2)
  - Gastrostomy [Unknown]
  - Amniotic membrane graft [Unknown]
